FAERS Safety Report 11334789 (Version 7)
Quarter: 2018Q1

REPORT INFORMATION
  Report Type: Spontaneous
  Country: US (occurrence: US)
  Receive Date: 20150804
  Receipt Date: 20180131
  Transmission Date: 20180508
  Serious: Yes (Hospitalization, Disabling)
  Sender: FDA-Public Use
  Company Number: US-ASTRAZENECA-2015SE71131

PATIENT
  Age: 17099 Day
  Sex: Female
  Weight: 118.8 kg

DRUGS (8)
  1. BENTYL [Concomitant]
     Active Substance: DICYCLOMINE HYDROCHLORIDE
     Indication: IRRITABLE BOWEL SYNDROME
     Dosage: 10.0MG AS REQUIRED
     Route: 048
  2. PRILOSEC [Suspect]
     Active Substance: OMEPRAZOLE MAGNESIUM
     Indication: GASTROOESOPHAGEAL REFLUX DISEASE
     Route: 048
     Dates: start: 1999
  3. NEXIUM [Suspect]
     Active Substance: ESOMEPRAZOLE MAGNESIUM
     Indication: GASTROINTESTINAL DISORDER
     Route: 048
     Dates: start: 2001
  4. PRILOSEC [Suspect]
     Active Substance: OMEPRAZOLE MAGNESIUM
     Indication: GASTROOESOPHAGEAL REFLUX DISEASE
     Route: 048
     Dates: start: 1999
  5. NEXIUM [Suspect]
     Active Substance: ESOMEPRAZOLE MAGNESIUM
     Indication: GASTROOESOPHAGEAL REFLUX DISEASE
     Route: 048
  6. NEXIUM [Suspect]
     Active Substance: ESOMEPRAZOLE MAGNESIUM
     Indication: GASTROINTESTINAL DISORDER
     Route: 048
  7. IRON [Concomitant]
     Active Substance: IRON
  8. NEXIUM [Suspect]
     Active Substance: ESOMEPRAZOLE MAGNESIUM
     Indication: GASTROOESOPHAGEAL REFLUX DISEASE
     Route: 048
     Dates: start: 2001

REACTIONS (17)
  - Vomiting [Unknown]
  - Weight increased [Unknown]
  - Malaise [Unknown]
  - Amnesia [Unknown]
  - Aphonia [Unknown]
  - Nausea [Unknown]
  - Product taste abnormal [Unknown]
  - Wrong patient received medication [Unknown]
  - Accident [Unknown]
  - Dysentery [Unknown]
  - Neuropathy peripheral [Unknown]
  - Product shape issue [Unknown]
  - Expired product administered [Recovered/Resolved]
  - Multiple fractures [Unknown]
  - Iron deficiency [Unknown]
  - Diarrhoea [Unknown]
  - Product colour issue [Unknown]

NARRATIVE: CASE EVENT DATE: 20150701
